FAERS Safety Report 20737728 (Version 1)
Quarter: 2022Q2

REPORT INFORMATION
  Report Type: Spontaneous
  Country: US (occurrence: US)
  Receive Date: 20220422
  Receipt Date: 20220422
  Transmission Date: 20220721
  Serious: No
  Sender: FDA-Public Use
  Company Number: US-BRISTOL-MYERS SQUIBB COMPANY-2022-022913

PATIENT
  Age: 77 Year
  Sex: Female
  Weight: 81 kg

DRUGS (1)
  1. REVLIMID [Suspect]
     Active Substance: LENALIDOMIDE
     Indication: Plasma cell myeloma
     Dosage: 1 CAPSULE FOR 21 DAYS , 7 DAYS OFF
     Route: 048
     Dates: start: 202010

REACTIONS (1)
  - Infection [Recovering/Resolving]
